FAERS Safety Report 9336421 (Version 2)
Quarter: 2013Q2

REPORT INFORMATION
  Report Type: Spontaneous
  Country: US (occurrence: US)
  Receive Date: 20130607
  Receipt Date: 20130624
  Transmission Date: 20140414
  Serious: Yes (Life-Threatening, Hospitalization)
  Sender: FDA-Public Use
  Company Number: US-JNJFOC-20130522816

PATIENT
  Age: 54 Year
  Sex: Male

DRUGS (8)
  1. XARELTO [Suspect]
     Indication: KNEE ARTHROPLASTY
     Route: 048
     Dates: start: 2013, end: 2013
  2. XARELTO [Suspect]
     Indication: KNEE ARTHROPLASTY
     Dosage: FOR 3 DAYS
     Route: 048
     Dates: start: 2013, end: 2013
  3. XARELTO [Suspect]
     Indication: THROMBOSIS PROPHYLAXIS
     Dosage: FOR 3 DAYS
     Route: 048
     Dates: start: 2013, end: 2013
  4. XARELTO [Suspect]
     Indication: THROMBOSIS PROPHYLAXIS
     Route: 048
     Dates: start: 2013, end: 2013
  5. CRESTOR [Concomitant]
     Indication: HYPERTENSION
     Dosage: FOR 2 YEARS
     Route: 065
  6. LIPOFENE [Concomitant]
     Dosage: FOR 2 YEARS
     Route: 065
  7. MICARDIS HCT [Concomitant]
     Indication: HYPERTENSION
     Dosage: 40/12.5
     Route: 065
  8. OXYCODONE [Concomitant]
     Indication: PAIN
     Dosage: FOR 6 DAYS
     Route: 065

REACTIONS (2)
  - Pulmonary embolism [Recovering/Resolving]
  - Deep vein thrombosis [Recovering/Resolving]
